FAERS Safety Report 6945793-4 (Version None)
Quarter: 2010Q3

REPORT INFORMATION
  Report Type: 
  Country: None (occurrence: None)
  Receive Date: 20100827
  Receipt Date: 20100819
  Transmission Date: 20110219
  Serious: Yes (Hospitalization)
  Sender: FDA-Public Use
  Company Number: Z0005300A

PATIENT
  Age: 62 Year
  Sex: Female
  Weight: 69.1 kg

DRUGS (5)
  1. FLUTICASONE FUROATE [Suspect]
     Indication: ASTHMA
     Dosage: 100MCG PER DAY
     Route: 055
     Dates: start: 20100729
  2. NORMAL SALINE [Concomitant]
     Indication: CHEST PAIN
     Dosage: .9PCT CONTINUOUS
     Route: 042
     Dates: start: 20100808, end: 20100809
  3. MORPHINE SULFATE [Concomitant]
     Indication: CHEST PAIN
     Dosage: 2MG AS REQUIRED
     Route: 042
     Dates: start: 20100808, end: 20100809
  4. NEXIUM [Concomitant]
     Indication: CHEST PAIN
     Dosage: 40MG TWICE PER DAY
     Route: 048
     Dates: start: 20100808, end: 20100809
  5. ASPIRIN [Concomitant]
     Indication: CHEST PAIN
     Dosage: 325MG PER DAY
     Route: 048
     Dates: start: 20100808

REACTIONS (1)
  - CHEST PAIN [None]
